FAERS Safety Report 8519507 (Version 3)
Quarter: 2013Q1

REPORT INFORMATION
  Report Type: Spontaneous
  Country: US (occurrence: US)
  Receive Date: 20120418
  Receipt Date: 20130103
  Transmission Date: 20140127
  Serious: No
  Sender: FDA-Public Use
  Company Number: US-ASTRAZENECA-2012SE08626

PATIENT
  Age: 55 Year
  Sex: Female

DRUGS (2)
  1. NEXIUM [Suspect]
     Route: 048
  2. SEROQUEL [Suspect]
     Route: 048

REACTIONS (8)
  - Gastrooesophageal reflux disease [Unknown]
  - Discomfort [Unknown]
  - Oesophageal pain [Unknown]
  - Schizophrenia [Unknown]
  - Bipolar disorder [Unknown]
  - Malaise [Unknown]
  - Vomiting [Unknown]
  - Drug dose omission [Unknown]
